FAERS Safety Report 9354512 (Version 2)
Quarter: 2013Q3

REPORT INFORMATION
  Report Type: Spontaneous
  Country: US (occurrence: US)
  Receive Date: 20130618
  Receipt Date: 20130924
  Transmission Date: 20140515
  Serious: No
  Sender: FDA-Public Use
  Company Number: US-009507513-1305USA004373

PATIENT
  Age: 23 Year
  Sex: Female
  Weight: 49.89 kg

DRUGS (4)
  1. CLARITIN [Suspect]
     Indication: EYE PRURITUS
     Dosage: 10 MG, QD
     Route: 048
     Dates: start: 2012
  2. CLARITIN [Suspect]
     Indication: RHINORRHOEA
     Dosage: 10 MG, QD
     Route: 048
     Dates: start: 20130422, end: 20130515
  3. CLARITIN [Suspect]
     Indication: THROAT IRRITATION
  4. CLARITIN [Suspect]
     Indication: SNEEZING

REACTIONS (1)
  - Drug ineffective [Unknown]
